FAERS Safety Report 19155877 (Version 3)
Quarter: 2021Q2

REPORT INFORMATION
  Report Type: Spontaneous
  Country: DE (occurrence: DE)
  Receive Date: 20210419
  Receipt Date: 20210507
  Transmission Date: 20210717
  Serious: Yes (Death)
  Sender: FDA-Public Use
  Company Number: DE-ASTRAZENECA-2021A321659

PATIENT
  Age: 32 Year
  Sex: Female

DRUGS (4)
  1. METOPROLOL. [Suspect]
     Active Substance: METOPROLOL
     Indication: MIGRAINE
     Route: 065
     Dates: start: 20151104, end: 20210210
  2. MAXALT [Concomitant]
     Active Substance: RIZATRIPTAN BENZOATE
     Indication: MIGRAINE
     Dosage: 10.0MG INTERMITTENT
     Route: 065
     Dates: start: 20160128, end: 20210210
  3. ASTRAZENECA COVID?19 VACCINE [Suspect]
     Active Substance: AZD-1222
     Indication: COVID-19
     Dosage: UNK UNK, UNKNOWN UNKNOWN
     Route: 030
     Dates: start: 20210225
  4. TRIPTAN [ZOLMITRIPTAN] [Suspect]
     Active Substance: ZOLMITRIPTAN
     Indication: MIGRAINE
     Dosage: UNK UNK, UNKNOWN
     Route: 065

REACTIONS (1)
  - Cerebral haemorrhage [Fatal]
